FAERS Safety Report 10003348 (Version 2)
Quarter: 2014Q1

REPORT INFORMATION
  Report Type: Spontaneous
  Country: US (occurrence: US)
  Receive Date: 20140312
  Receipt Date: 20140312
  Transmission Date: 20141002
  Serious: No
  Sender: FDA-Public Use
  Company Number: US-GILEAD-2012-0059232

PATIENT
  Sex: Male

DRUGS (2)
  1. LETAIRIS [Suspect]
     Indication: PRODUCT USED FOR UNKNOWN INDICATION
     Dosage: 5 MG, UNK
     Route: 048
     Dates: start: 2012
  2. OXYGEN [Suspect]

REACTIONS (6)
  - Cough [Unknown]
  - Haemoptysis [Unknown]
  - Nasal dryness [Unknown]
  - Epistaxis [Unknown]
  - Asthenia [Unknown]
  - Nasal congestion [Unknown]
